FAERS Safety Report 10417791 (Version 1)
Quarter: 2014Q3

REPORT INFORMATION
  Report Type: Spontaneous
  Country: US (occurrence: None)
  Receive Date: 20140828
  Receipt Date: 20140828
  Transmission Date: 20150326
  Serious: No
  Sender: FDA-Public Use
  Company Number: None

PATIENT
  Age: 17 Year
  Sex: Female
  Weight: 48.54 kg

DRUGS (2)
  1. XULANE [Suspect]
     Active Substance: ETHINYL ESTRADIOL\NORELGESTROMIN
     Indication: CONTRACEPTION
     Dosage: ONE PATCH, (31 MO) WEEKLY, TRANSDERMAL
     Route: 062
     Dates: start: 201405
  2. XULANE [Suspect]
     Active Substance: ETHINYL ESTRADIOL\NORELGESTROMIN
     Indication: MENSTRUAL CYCLE MANAGEMENT
     Dosage: ONE PATCH, (31 MO) WEEKLY, TRANSDERMAL
     Route: 062
     Dates: start: 201405

REACTIONS (8)
  - Application site irritation [None]
  - Product substitution issue [None]
  - Application site dermatitis [None]
  - Device adhesion issue [None]
  - Application site erythema [None]
  - Metrorrhagia [None]
  - Application site odour [None]
  - Dermatitis contact [None]

NARRATIVE: CASE EVENT DATE: 201405
